FAERS Safety Report 8696205 (Version 3)
Quarter: 2012Q4

REPORT INFORMATION
  Report Type: 
  Country: US (occurrence: US)
  Receive Date: 20120801
  Receipt Date: 20120912
  Transmission Date: 20130627
  Serious: Yes (Other)
  Sender: FDA-Public Use
  Company Number: US-SANOFI-AVENTIS-2012SA054437

PATIENT
  Age: 63 Year
  Sex: Female
  Weight: 89.81 kg

DRUGS (29)
  1. LANTUS [Suspect]
     Indication: TYPE 2 DIABETES MELLITUS
     Dosage: Dose:70 unit(s)
     Route: 058
     Dates: start: 2006
  2. LANTUS [Suspect]
     Indication: TYPE 2 DIABETES MELLITUS
     Dosage: Dose:70 unit(s)
     Route: 058
     Dates: start: 2006
  3. HUMALOG [Suspect]
     Indication: TYPE 2 DIABETES MELLITUS
     Dosage: Dose:40 unit(s)
     Route: 065
  4. DIGOXIN [Concomitant]
     Indication: BLOOD PRESSURE
     Dates: start: 2010
  5. PLAVIX [Concomitant]
     Indication: HEART DISORDER
     Dates: start: 2010
  6. ZOLOFT [Concomitant]
     Indication: NERVOUSNESS
  7. ZOLOFT [Concomitant]
     Indication: NERVOUSNESS
     Dosage: took 2 pill a day.
  8. ZOLOFT [Concomitant]
     Indication: NERVOUSNESS
     Dosage: took 400 mg a day.
  9. METFORMIN [Concomitant]
     Indication: DIABETES MELLITUS
  10. LOPRESOR [Concomitant]
     Indication: HEART DISORDER
  11. WARFARIN [Concomitant]
     Indication: THROMBOSIS PROPHYLAXIS
     Dates: start: 2008
  12. CARDIZEM [Concomitant]
     Indication: HEART DISORDER
     Dosage: took 2 daily.
  13. LISINOPRIL [Concomitant]
  14. LISINOPRIL [Concomitant]
  15. TEMAZEPAM [Concomitant]
     Dosage: one at night as needed.
  16. CLONAZEPAM [Concomitant]
     Dosage: took it at night as needed.
  17. LEVOTHYROXINE [Concomitant]
  18. ZOCOR [Concomitant]
  19. FUROSEMIDE [Concomitant]
  20. ASPIRIN [Concomitant]
  21. PREVACID [Concomitant]
     Dosage: took one a day.
  22. OLOPATADINE HYDROCHLORIDE [Concomitant]
  23. NIASPAN [Concomitant]
  24. ZOVIRAX [Concomitant]
     Dosage: took it as needed at bed.
  25. MACRODANTIN [Concomitant]
  26. GABAPENTIN [Concomitant]
  27. LORTAB [Concomitant]
     Dosage: took every 8 hours as needed.
  28. AMBIEN [Concomitant]
     Dosage: took at bed time as needed.
  29. ALL OTHER THERAPEUTIC PRODUCTS [Concomitant]

REACTIONS (3)
  - Cerebrovascular accident [Unknown]
  - Asthenia [Unknown]
  - Hypoacusis [Unknown]
